FAERS Safety Report 8921336 (Version 1)
Quarter: 2012Q4

REPORT INFORMATION
  Report Type: 
  Country: JP (occurrence: JP)
  Receive Date: 20121122
  Receipt Date: 20121122
  Transmission Date: 20130627
  Serious: Yes (Death, Hospitalization)
  Sender: FDA-Public Use
  Company Number: JP-009507513-2008SP001985

PATIENT
  Age: 71 Year
  Sex: Female
  Weight: 42 kg

DRUGS (47)
  1. TEMOZOLOMIDE [Suspect]
     Indication: GLIOBLASTOMA MULTIFORME
     Dosage: 150 mg/m2, QD
     Route: 048
     Dates: start: 20061117, end: 20061121
  2. TEMOZOLOMIDE [Suspect]
     Dosage: 150 mg/m2, QD
     Route: 048
     Dates: start: 20061216, end: 20061220
  3. TEMOZOLOMIDE [Suspect]
     Dosage: 150 mg/m2, QD
     Route: 048
     Dates: start: 20070112, end: 20070116
  4. TEMOZOLOMIDE [Suspect]
     Dosage: 150 mg/m2, QD
     Route: 048
     Dates: start: 20070223, end: 20070227
  5. TEMOZOLOMIDE [Suspect]
     Dosage: 150 mg/m2, QD
     Route: 048
     Dates: start: 20070323, end: 20070327
  6. TEMOZOLOMIDE [Suspect]
     Dosage: 150 mg/m2, QD
     Route: 048
     Dates: start: 20070419, end: 20070423
  7. TEMOZOLOMIDE [Suspect]
     Dosage: 150 mg/m2, QD
     Route: 048
     Dates: start: 20070523, end: 20070527
  8. TEMOZOLOMIDE [Suspect]
     Dosage: 150 mg/m2, QD
     Route: 048
     Dates: start: 20070622, end: 20070626
  9. TEMOZOLOMIDE [Suspect]
     Dosage: 150 mg/m2, QD
     Route: 048
     Dates: start: 20070720, end: 20070724
  10. TEMOZOLOMIDE [Suspect]
     Dosage: 150 mg/m2, QD
     Route: 048
     Dates: start: 20070817, end: 20070821
  11. TEMOZOLOMIDE [Suspect]
     Dosage: 150 mg/m2, QD
     Route: 048
     Dates: start: 20070914, end: 20070918
  12. TEMOZOLOMIDE [Suspect]
     Dosage: 150 mg/m2, qd
     Route: 048
     Dates: start: 20071012, end: 20071016
  13. TEMOZOLOMIDE [Suspect]
     Dosage: 150 mg/m2, qd
     Route: 048
     Dates: start: 20070909, end: 20111113
  14. TEMOZOLOMIDE [Suspect]
     Dosage: 150 mg/m2, qd
     Route: 048
     Dates: start: 20071205, end: 20071209
  15. TEMOZOLOMIDE [Suspect]
     Dosage: 150 mg/m2, qd
     Route: 048
     Dates: start: 20080101, end: 20080108
  16. TEMOZOLOMIDE [Suspect]
     Dosage: 150 mg/m2, qd
     Route: 048
     Dates: start: 20080201, end: 20080205
  17. TEMOZOLOMIDE [Suspect]
     Dosage: 150 mg/m2, qd
     Route: 048
     Dates: start: 20080229, end: 20080304
  18. TEMOZOLOMIDE [Suspect]
     Dosage: 150 mg/m2, qd
     Route: 048
     Dates: start: 20080328, end: 20080401
  19. TEMOZOLOMIDE [Suspect]
     Dosage: 150 mg/m2, qd
     Route: 048
     Dates: start: 20080423, end: 20080427
  20. TEMOZOLOMIDE [Suspect]
     Dosage: 150 mg/m2, UNK
     Route: 048
     Dates: start: 20080523, end: 20080527
  21. TEMOZOLOMIDE [Suspect]
     Dosage: 150 mg/m2, UNK
     Route: 048
     Dates: start: 20080725, end: 20080729
  22. TEMOZOLOMIDE [Suspect]
     Dosage: 150 mg/m2, UNK
     Route: 048
     Dates: start: 20080829, end: 20080902
  23. TEMOZOLOMIDE [Suspect]
     Dosage: 150 mg/m2, UNK
     Route: 048
     Dates: start: 20080926, end: 20080930
  24. TEMOZOLOMIDE [Suspect]
     Dosage: 150 mg/m2, UNK
     Route: 048
     Dates: start: 20081031, end: 20081104
  25. TEMOZOLOMIDE [Suspect]
     Dosage: 150 mg/m2, UNK
     Route: 048
     Dates: start: 20081128, end: 20081202
  26. TEMOZOLOMIDE [Suspect]
     Dosage: 150 mg/m2, UNK
     Route: 048
     Dates: start: 20081226, end: 20081230
  27. TEMOZOLOMIDE [Suspect]
     Dosage: 150 mg/m2, UNK
     Route: 048
     Dates: start: 20090123, end: 20090127
  28. TEMOZOLOMIDE [Suspect]
     Dosage: 150 mg/m2, UNK
     Route: 048
     Dates: start: 20090220, end: 20090224
  29. TEMOZOLOMIDE [Suspect]
     Dosage: 150 mg/m2, UNK
     Route: 048
     Dates: start: 20090318, end: 20090322
  30. TEMOZOLOMIDE [Suspect]
     Dosage: 150 mg/m2, UNK
     Route: 048
     Dates: start: 20090417, end: 20090421
  31. TEMOZOLOMIDE [Suspect]
     Dosage: 150 mg/m2, UNK
     Route: 048
     Dates: start: 20090515, end: 20090519
  32. TEMOZOLOMIDE [Suspect]
     Dosage: 150 mg/m2, UNK
     Route: 048
     Dates: start: 20090612, end: 20090616
  33. TEMOZOLOMIDE [Suspect]
     Dosage: 150 mg/m2, UNK
     Route: 048
     Dates: start: 20090710, end: 20090714
  34. TEMOZOLOMIDE [Suspect]
     Dosage: 150 mg/m2, UNK
     Route: 048
     Dates: start: 20090805, end: 20090809
  35. TEMOZOLOMIDE [Suspect]
     Dosage: 150 mg/m2, UNK
     Route: 048
     Dates: start: 20090911, end: 20090915
  36. TEMOZOLOMIDE [Suspect]
     Dosage: 150 mg/m2, UNK
     Route: 048
     Dates: start: 20091014, end: 20091019
  37. TEMOZOLOMIDE [Suspect]
     Dosage: 150 mg/m2, UNK
     Route: 048
     Dates: start: 20091123, end: 20091127
  38. TEMOZOLOMIDE [Suspect]
     Dosage: 150 mg/m2, UNK
     Route: 048
     Dates: start: 20091221, end: 20091225
  39. TEMOZOLOMIDE [Suspect]
     Dosage: 150 mg/m2, UNK
     Route: 048
     Dates: start: 20100118, end: 20100122
  40. TEMOZOLOMIDE [Suspect]
     Dosage: 150 mg/m2, UNK
     Route: 048
     Dates: start: 20100215, end: 20100219
  41. TEMOZOLOMIDE [Suspect]
     Dosage: 150 mg/m2, UNK
     Route: 048
     Dates: start: 20100322, end: 20100326
  42. PREDNISOLONE [Suspect]
     Indication: GLIOBLASTOMA MULTIFORME
     Dosage: UNK
     Route: 048
     Dates: end: 20121012
  43. ALEVIATIN [Concomitant]
     Route: 048
  44. RANITAC [Concomitant]
     Indication: PROPHYLAXIS
     Route: 048
     Dates: end: 20070322
  45. MAGNESIUM OXIDE [Concomitant]
     Indication: PROPHYLAXIS
     Route: 048
  46. ZOFRAN ZYDIS [Concomitant]
     Indication: PROPHYLAXIS
     Route: 048
     Dates: start: 20061117
  47. PARIET [Concomitant]
     Dosage: UNK
     Dates: start: 20070328

REACTIONS (14)
  - Disease progression [Fatal]
  - Pneumonia [Recovered/Resolved]
  - White blood cell count decreased [Recovered/Resolved]
  - Hepatic function abnormal [Recovered/Resolved]
  - Red blood cell count decreased [Recovered/Resolved]
  - Protein total decreased [Not Recovered/Not Resolved]
  - Blood creatinine increased [Recovered/Resolved]
  - Blood glucose increased [Recovered/Resolved]
  - Blood alkaline phosphatase increased [Recovered/Resolved]
  - Blood cholesterol increased [Recovered/Resolved]
  - Blood triglycerides increased [Recovered/Resolved]
  - Red blood cell count decreased [Recovered/Resolved]
  - Neutrophil count decreased [Recovered/Resolved]
  - White blood cell count decreased [Recovered/Resolved]
